FAERS Safety Report 13823920 (Version 1)
Quarter: 2017Q3

REPORT INFORMATION
  Report Type: Spontaneous
  Country: US (occurrence: US)
  Receive Date: 20170801
  Receipt Date: 20170801
  Transmission Date: 20171127
  Serious: Yes (Hospitalization)
  Sender: FDA-Public Use
  Company Number: None

PATIENT
  Age: 44 Year
  Sex: Female

DRUGS (10)
  1. FOLIC ACID. [Concomitant]
     Active Substance: FOLIC ACID
  2. SYNTHROID [Concomitant]
     Active Substance: LEVOTHYROXINE SODIUM
  3. CINAMMN [Concomitant]
  4. FISH OIL [Concomitant]
     Active Substance: FISH OIL
  5. HYDROCHLOROT [Concomitant]
     Active Substance: HYDROCHLOROTHIAZIDE
  6. ZANTAC [Concomitant]
     Active Substance: RANITIDINE HYDROCHLORIDE
  7. ENBREL [Suspect]
     Active Substance: ETANERCEPT
     Indication: PSORIATIC ARTHROPATHY
     Route: 058
     Dates: start: 20150113
  8. SULINDAC. [Concomitant]
     Active Substance: SULINDAC
  9. COQ10 [Concomitant]
     Active Substance: UBIDECARENONE
  10. MAXALT-MLT [Concomitant]
     Active Substance: RIZATRIPTAN BENZOATE

REACTIONS (2)
  - Drug dose omission [None]
  - Surgery [None]
